FAERS Safety Report 5164349-X (Version None)
Quarter: 2006Q4

REPORT INFORMATION
  Report Type: 
  Country: None (occurrence: None)
  Receive Date: 20061127
  Receipt Date: 20061127
  Transmission Date: 20070319
  Serious: Yes (Hospitalization)
  Sender: FDA-Public Use
  Company Number: None

PATIENT
  Age: 95 Year
  Sex: Female

DRUGS (13)
  1. MACRODANTIN [Suspect]
     Indication: URINARY TRACT INFECTION
  2. LEVOXYL [Concomitant]
  3. LABETALOL HCL [Concomitant]
  4. NORVASC [Concomitant]
  5. GLIPIZIDE [Concomitant]
  6. PROVERA [Concomitant]
  7. VITAMIN C500 [Concomitant]
  8. PROTONIX [Concomitant]
  9. TUMS [Concomitant]
  10. COLACE [Concomitant]
  11. MIRALAX [Concomitant]
  12. CATAPRES [Concomitant]
  13. LANTUS [Concomitant]

REACTIONS (1)
  - PULMONARY FIBROSIS [None]
